FAERS Safety Report 6511389-1 (Version None)
Quarter: 2009Q4

REPORT INFORMATION
  Report Type: 
  Country: None (occurrence: None)
  Receive Date: 20091222
  Receipt Date: 20090310
  Transmission Date: 20100525
  Serious: No
  Sender: FDA-Public Use
  Company Number: US-ASTRAZENECA-2009UW06246

PATIENT
  Age: 745 Month
  Sex: Female
  Weight: 63.5 kg

DRUGS (3)
  1. CRESTOR [Suspect]
     Indication: HIGH DENSITY LIPOPROTEIN DECREASED
     Route: 048
     Dates: start: 20081001, end: 20081230
  2. NIASPAN [Concomitant]
     Dates: start: 20080501
  3. LEVOTHYROXINE SODIUM [Concomitant]

REACTIONS (2)
  - DYSARTHRIA [None]
  - HYPOAESTHESIA ORAL [None]
